FAERS Safety Report 8227096-3 (Version None)
Quarter: 2012Q1

REPORT INFORMATION
  Report Type: 
  Country: None (occurrence: None)
  Receive Date: 20120322
  Receipt Date: 20120314
  Transmission Date: 20120608
  Serious: No
  Sender: FDA-Public Use
  Company Number: CA-JNJFOC-20120307124

PATIENT
  Sex: Male

DRUGS (4)
  1. IMURAN [Concomitant]
  2. SULFASALAZINE [Concomitant]
  3. REMICADE [Suspect]
     Indication: COLITIS ULCERATIVE
     Route: 042
  4. PREDNISONE TAB [Concomitant]

REACTIONS (1)
  - HERPES ZOSTER [None]
